FAERS Safety Report 6082456-4 (Version None)
Quarter: 2009Q1

REPORT INFORMATION
  Report Type: 
  Country: None (occurrence: None)
  Receive Date: 20090218
  Receipt Date: 20090210
  Transmission Date: 20090719
  Serious: Yes (Hospitalization, Other)
  Sender: FDA-Public Use
  Company Number: US-WATSON-2009-00951

PATIENT
  Sex: Male

DRUGS (11)
  1. FERRLECIT [Suspect]
     Indication: IRON DEFICIENCY
     Dosage: 250 MG, SINGLE DOSE ON 23-DEC-2009 AND SINGLE DOSE ON 08-JAN-2009
     Route: 042
     Dates: start: 20081223, end: 20090108
  2. TERAZOSIN HYDROCHLORIDE [Concomitant]
     Indication: DRUG USE FOR UNKNOWN INDICATION
     Dosage: 10 MG, QHS
     Route: 048
  3. LISINOPRIL [Concomitant]
     Indication: DRUG USE FOR UNKNOWN INDICATION
     Dosage: 40 MG, DAILY
     Route: 048
  4. PHENOBARBITAL [Concomitant]
     Indication: DRUG USE FOR UNKNOWN INDICATION
     Dosage: 16 MG, QHS
     Route: 048
  5. AMLODIPINE BESYLATE [Concomitant]
     Indication: DRUG USE FOR UNKNOWN INDICATION
     Dosage: 10 MG, BID
     Route: 048
  6. ASPIRIN [Concomitant]
     Indication: DRUG USE FOR UNKNOWN INDICATION
     Dosage: 81 MG, DAILY
     Route: 048
  7. PROCRIT                            /00909301/ [Concomitant]
     Indication: DRUG USE FOR UNKNOWN INDICATION
     Dosage: MONTHLY
     Route: 065
  8. FUROSEMIDE [Concomitant]
     Indication: DRUG USE FOR UNKNOWN INDICATION
     Dosage: 40 MG, DAILY
     Route: 048
  9. CALCITROL                          /00508501/ [Concomitant]
     Indication: DRUG USE FOR UNKNOWN INDICATION
     Dosage: 0.5 MG, DAILY
     Route: 048
  10. LABETALOL HCL [Concomitant]
     Indication: HYPERTENSION
     Dosage: 400 MG, BID
     Route: 048
  11. SIMVASTATIN [Concomitant]
     Indication: DRUG USE FOR UNKNOWN INDICATION
     Dosage: 80 MG, QPM
     Route: 048

REACTIONS (17)
  - ASTHENIA [None]
  - ATRIOVENTRICULAR BLOCK FIRST DEGREE [None]
  - DEFAECATION URGENCY [None]
  - DIZZINESS [None]
  - DROOLING [None]
  - FACIAL PALSY [None]
  - FLUSHING [None]
  - HYPERHIDROSIS [None]
  - HYPOTENSION [None]
  - LOSS OF CONSCIOUSNESS [None]
  - MALAISE [None]
  - NAUSEA [None]
  - OXYGEN SATURATION DECREASED [None]
  - PALLOR [None]
  - PNEUMONIA [None]
  - SINUS BRADYCARDIA [None]
  - SYNCOPE [None]
